FAERS Safety Report 5757299-9 (Version None)
Quarter: 2008Q2

REPORT INFORMATION
  Report Type: 
  Country: None (occurrence: None)
  Receive Date: 20080603
  Receipt Date: 20080529
  Transmission Date: 20081010
  Serious: Yes (Other)
  Sender: FDA-Public Use
  Company Number: GB-ROCHE-567309

PATIENT
  Sex: Female
  Weight: 77.1 kg

DRUGS (2)
  1. ORLISTAT [Suspect]
     Indication: OBESITY
     Route: 048
     Dates: start: 20071213
  2. UNSPECIFIED MEDICATIONS [Concomitant]

REACTIONS (1)
  - TYPE 2 DIABETES MELLITUS [None]
